FAERS Safety Report 5521065-X (Version None)
Quarter: 2007Q4

REPORT INFORMATION
  Report Type: 
  Country: None (occurrence: None)
  Receive Date: 20071119
  Receipt Date: 20071112
  Transmission Date: 20080405
  Serious: Yes (Other)
  Sender: FDA-Public Use
  Company Number: GB-BRISTOL-MYERS SQUIBB COMPANY-13981626

PATIENT
  Age: 19 Year
  Sex: Female
  Weight: 50 kg

DRUGS (3)
  1. SUSTIVA [Suspect]
     Route: 048
     Dates: start: 20071018, end: 20071101
  2. KIVEXA [Suspect]
     Route: 048
     Dates: start: 20071018
  3. LAMOTRIGINE [Suspect]
     Route: 048
     Dates: start: 20070901

REACTIONS (1)
  - ANGIOEDEMA [None]
